FAERS Safety Report 7186061-8 (Version None)
Quarter: 2010Q4

REPORT INFORMATION
  Report Type: 
  Country: None (occurrence: None)
  Receive Date: 20101222
  Receipt Date: 20100614
  Transmission Date: 20110411
  Serious: No
  Sender: FDA-Public Use
  Company Number: US-AMGEN-KDL418276

PATIENT

DRUGS (6)
  1. ENBREL [Suspect]
     Indication: PRODUCT USED FOR UNKNOWN INDICATION
     Dosage: 50 MG, QWK
     Route: 058
  2. LEVOTHYROXINE SODIUM [Concomitant]
     Dosage: 50 MG, UNK
  3. FOLIC ACID [Concomitant]
     Dosage: 1 MG, UNK
  4. CALCIUM [Concomitant]
     Dosage: 600 MG, UNK
  5. METHOTREXATE [Concomitant]
     Dosage: 50 MG, UNK
  6. MULTI-VITAMINS [Concomitant]
     Dosage: UNK UNK, UNK

REACTIONS (3)
  - FATIGUE [None]
  - INJECTION SITE ERYTHEMA [None]
  - INJECTION SITE PRURITUS [None]
